FAERS Safety Report 4317061-0 (Version None)
Quarter: 2004Q1

REPORT INFORMATION
  Report Type: 
  Country: None (occurrence: None)
  Receive Date: 20040312
  Receipt Date: 20040302
  Transmission Date: 20041129
  Serious: Yes (Hospitalization)
  Sender: FDA-Public Use
  Company Number: US-JNJFOC-20040301098

PATIENT
  Age: 80 Year
  Sex: Male

DRUGS (2)
  1. TOPAMAX [Suspect]
     Indication: PAIN IN EXTREMITY
     Dosage: ORAL
     Route: 048
  2. STELAZINE [Suspect]
     Indication: PAIN IN EXTREMITY

REACTIONS (3)
  - CONFUSIONAL STATE [None]
  - MENTAL STATUS CHANGES [None]
  - SPINAL COLUMN STENOSIS [None]
